FAERS Safety Report 23426927 (Version 1)
Quarter: 2024Q1

REPORT INFORMATION
  Report Type: Spontaneous
  Country: CN (occurrence: CN)
  Receive Date: 20240122
  Receipt Date: 20240122
  Transmission Date: 20240410
  Serious: Yes (Hospitalization, Other)
  Sender: FDA-Public Use
  Company Number: CN-MLMSERVICE-20240108-4758079-3

PATIENT
  Age: 29 Year
  Sex: Male
  Weight: 65 kg

DRUGS (34)
  1. ETOPOSIDE [Suspect]
     Active Substance: ETOPOSIDE
     Indication: Pituitary tumour benign
     Dosage: 170 MG/M2, D1-2, 1ST CYCLE OF CHEMOTHERAPY+ IMMUNOTHERAPY, ON 13+AMP;27-FEB, 10+AMP;24-APR, 27-MAR
     Dates: start: 20190105
  2. METHOTREXATE [Suspect]
     Active Substance: METHOTREXATE
     Indication: Pituitary tumour benign
     Dosage: (ALSO ON 27-FEB, 05+AMP;28-JAN), 160 MG/M2 ON 10-APR, 100 MG/M2 27-MAR
     Dates: start: 20190213
  3. ACTINOMYCIN D [Suspect]
     Active Substance: DACTINOMYCIN
     Indication: Pituitary tumour benign
     Dosage: 0.6 MG/M2, 0.4 MG/M2, 0.5 MG/M2 ON 27-FEB, 28+AMP;05-JAN, 10-APR, 27-MAR
     Dates: start: 20190213
  4. CYCLOPHOSPHAMIDE [Suspect]
     Active Substance: CYCLOPHOSPHAMIDE
     Indication: Pituitary tumour benign
     Dosage: 1000 MG/M2 ON 05+AMP;28-JAN, 27 FEB, 800 MG/M2 ON 10-APR +AMP; 16-MAY, 680 MG/M2 ON 27-MAR
     Dates: start: 20190213
  5. NIVOLUMAB [Suspect]
     Active Substance: NIVOLUMAB
     Indication: Pituitary tumour benign
     Dosage: 27-FEB-2019, 05-JAN-2019 AND 28-JAN-2019
     Dates: start: 20190410
  6. SINTILIMAB [Suspect]
     Active Substance: SINTILIMAB
     Indication: Pituitary tumour benign
     Dosage: ALSO ON 27-MAR-2019
     Dates: start: 20190313
  7. VINCRISTINE [Suspect]
     Active Substance: VINCRISTINE
     Indication: Pituitary tumour benign
     Dosage: (ALSO ON 05-JAN 28-JAN, 13-FEB, 10-APR), 1 MG/M2 ON 27-MAR
     Dates: start: 20190227
  8. NIVOLUMAB [Suspect]
     Active Substance: NIVOLUMAB
     Indication: Mediastinum neoplasm
     Dosage: 27-FEB-2019, 05-JAN-2019 AND 28-JAN-2019
     Dates: start: 20190410
  9. NIVOLUMAB [Suspect]
     Active Substance: NIVOLUMAB
     Indication: Metastases to lung
     Dosage: 27-FEB-2019, 05-JAN-2019 AND 28-JAN-2019
     Dates: start: 20190410
  10. NIVOLUMAB [Suspect]
     Active Substance: NIVOLUMAB
     Indication: Choriocarcinoma
     Dosage: 27-FEB-2019, 05-JAN-2019 AND 28-JAN-2019
     Dates: start: 20190410
  11. SINTILIMAB [Suspect]
     Active Substance: SINTILIMAB
     Indication: Mediastinum neoplasm
     Dosage: ALSO ON 27-MAR-2019
     Dates: start: 20190313
  12. CYCLOPHOSPHAMIDE [Suspect]
     Active Substance: CYCLOPHOSPHAMIDE
     Indication: Mediastinum neoplasm
     Dosage: 1000 MG/M2 ON 05+AMP;28-JAN, 27 FEB, 800 MG/M2 ON 10-APR +AMP; 16-MAY, 680 MG/M2 ON 27-MAR
     Dates: start: 20190213
  13. ACTINOMYCIN D [Suspect]
     Active Substance: DACTINOMYCIN
     Indication: Mediastinum neoplasm
     Dosage: 0.6 MG/M2, 0.4 MG/M2, 0.5 MG/M2 ON 27-FEB, 28+AMP;05-JAN, 10-APR, 27-MAR
     Dates: start: 20190213
  14. VINCRISTINE [Suspect]
     Active Substance: VINCRISTINE
     Indication: Mediastinum neoplasm
     Dosage: (ALSO ON 05-JAN 28-JAN, 13-FEB, 10-APR), 1 MG/M2 ON 27-MAR
     Dates: start: 20190227
  15. METHOTREXATE [Suspect]
     Active Substance: METHOTREXATE
     Indication: Mediastinum neoplasm
     Dosage: (ALSO ON 27-FEB, 05+AMP;28-JAN), 160 MG/M2 ON 10-APR, 100 MG/M2 27-MAR
     Dates: start: 20190213
  16. ETOPOSIDE [Suspect]
     Active Substance: ETOPOSIDE
     Indication: Mediastinum neoplasm
     Dosage: 170 MG/M2, D1-2, 1ST CYCLE OF CHEMOTHERAPY+ IMMUNOTHERAPY, ON 13+AMP;27-FEB, 10+AMP;24-APR, 27-MAR
     Dates: start: 20190105
  17. ETOPOSIDE [Suspect]
     Active Substance: ETOPOSIDE
     Indication: Metastases to lung
     Dosage: 170 MG/M2, D1-2, 1ST CYCLE OF CHEMOTHERAPY+ IMMUNOTHERAPY, ON 13+AMP;27-FEB, 10+AMP;24-APR, 27-MAR
     Dates: start: 20190105
  18. METHOTREXATE [Suspect]
     Active Substance: METHOTREXATE
     Indication: Metastases to lung
     Dosage: (ALSO ON 27-FEB, 05+AMP;28-JAN), 160 MG/M2 ON 10-APR, 100 MG/M2 27-MAR
     Dates: start: 20190213
  19. VINCRISTINE [Suspect]
     Active Substance: VINCRISTINE
     Indication: Metastases to lung
     Dosage: (ALSO ON 05-JAN 28-JAN, 13-FEB, 10-APR), 1 MG/M2 ON 27-MAR
     Dates: start: 20190227
  20. ACTINOMYCIN D [Suspect]
     Active Substance: DACTINOMYCIN
     Indication: Metastases to lung
     Dosage: 0.6 MG/M2, 0.4 MG/M2, 0.5 MG/M2 ON 27-FEB, 28+AMP;05-JAN, 10-APR, 27-MAR
     Dates: start: 20190213
  21. CYCLOPHOSPHAMIDE [Suspect]
     Active Substance: CYCLOPHOSPHAMIDE
     Indication: Metastases to lung
     Dosage: 1000 MG/M2 ON 05+AMP;28-JAN, 27 FEB, 800 MG/M2 ON 10-APR +AMP; 16-MAY, 680 MG/M2 ON 27-MAR
     Dates: start: 20190213
  22. SINTILIMAB [Suspect]
     Active Substance: SINTILIMAB
     Indication: Metastases to lung
     Dosage: ALSO ON 27-MAR-2019
     Dates: start: 20190313
  23. SINTILIMAB [Suspect]
     Active Substance: SINTILIMAB
     Indication: Choriocarcinoma
     Dosage: ALSO ON 27-MAR-2019
     Dates: start: 20190313
  24. CYCLOPHOSPHAMIDE [Suspect]
     Active Substance: CYCLOPHOSPHAMIDE
     Indication: Choriocarcinoma
     Dosage: 1000 MG/M2 ON 05+AMP;28-JAN, 27 FEB, 800 MG/M2 ON 10-APR +AMP; 16-MAY, 680 MG/M2 ON 27-MAR
     Dates: start: 20190213
  25. ACTINOMYCIN D [Suspect]
     Active Substance: DACTINOMYCIN
     Indication: Choriocarcinoma
     Dosage: 0.6 MG/M2, 0.4 MG/M2, 0.5 MG/M2 ON 27-FEB, 28+AMP;05-JAN, 10-APR, 27-MAR
     Dates: start: 20190213
  26. VINCRISTINE [Suspect]
     Active Substance: VINCRISTINE
     Indication: Choriocarcinoma
     Dosage: (ALSO ON 05-JAN 28-JAN, 13-FEB, 10-APR), 1 MG/M2 ON 27-MAR
     Dates: start: 20190227
  27. METHOTREXATE [Suspect]
     Active Substance: METHOTREXATE
     Indication: Choriocarcinoma
     Dosage: (ALSO ON 27-FEB, 05+AMP;28-JAN), 160 MG/M2 ON 10-APR, 100 MG/M2 27-MAR
     Dates: start: 20190213
  28. ETOPOSIDE [Suspect]
     Active Substance: ETOPOSIDE
     Indication: Choriocarcinoma
     Dosage: 170 MG/M2, D1-2, 1ST CYCLE OF CHEMOTHERAPY+ IMMUNOTHERAPY, ON 13+AMP;27-FEB, 10+AMP;24-APR, 27-MAR
     Dates: start: 20190105
  29. NIVOLUMAB [Suspect]
     Active Substance: NIVOLUMAB
     Indication: Pituitary tumour benign
     Dosage: OPDIVO+ EMA/CO, UNKNOWN DOSE
     Dates: start: 20190424
  30. ETOPOSIDE [Suspect]
     Active Substance: ETOPOSIDE
     Indication: Pituitary tumour benign
     Dosage: OPDIVO+ EMA/CO, UNKNOWN DOSE
     Dates: start: 20190424
  31. CYCLOPHOSPHAMIDE [Suspect]
     Active Substance: CYCLOPHOSPHAMIDE
     Indication: Pituitary tumour benign
     Dosage: OPDIVO+ EMA/CO, UNKNOWN DOSE
     Dates: start: 20190424
  32. ACTINOMYCIN D [Suspect]
     Active Substance: DACTINOMYCIN
     Indication: Pituitary tumour benign
     Dosage: OPDIVO+ EMA/CO, UNKNOWN DOSE
     Dates: start: 20190424
  33. VINCRISTINE [Suspect]
     Active Substance: VINCRISTINE
     Indication: Pituitary tumour benign
     Dosage: OPDIVO+ EMA/CO, UNKNOWN DOSE
     Dates: start: 20190424
  34. METHOTREXATE [Suspect]
     Active Substance: METHOTREXATE
     Indication: Pituitary tumour benign
     Dosage: OPDIVO+ EMA/CO, UNKNOWN DOSE
     Dates: start: 20190424

REACTIONS (1)
  - Granulocytes maturation arrest [Unknown]

NARRATIVE: CASE EVENT DATE: 20190101
